FAERS Safety Report 14148762 (Version 2)
Quarter: 2021Q2

REPORT INFORMATION
  Report Type: Report from Study
  Country: US (occurrence: US)
  Receive Date: 20171101
  Receipt Date: 20210410
  Transmission Date: 20210716
  Serious: No
  Sender: FDA-Public Use
  Company Number: US-SHIRE-US201720027

PATIENT
  Sex: Male

DRUGS (2)
  1. 489 (LISDEXAMFETAMINE DIMESYLATE) [Suspect]
     Active Substance: LISDEXAMFETAMINE DIMESYLATE
     Indication: PRODUCT USED FOR UNKNOWN INDICATION
     Dosage: UNK
     Route: 065
  2. 489 (LISDEXAMFETAMINE DIMESYLATE) [Suspect]
     Active Substance: LISDEXAMFETAMINE DIMESYLATE
     Dosage: UNK, QD
     Route: 048

REACTIONS (3)
  - Withdrawal syndrome [Unknown]
  - General physical health deterioration [Unknown]
  - Feeling abnormal [Unknown]
